FAERS Safety Report 13242637 (Version 2)
Quarter: 2017Q2

REPORT INFORMATION
  Report Type: Spontaneous
  Country: US (occurrence: US)
  Receive Date: 20170217
  Receipt Date: 20170510
  Transmission Date: 20170830
  Serious: No
  Sender: FDA-Public Use
  Company Number: US-009507513-1702USA002272

PATIENT
  Age: 26 Year
  Sex: Female
  Weight: 104.76 kg

DRUGS (2)
  1. NEXPLANON [Suspect]
     Active Substance: ETONOGESTREL
     Dosage: 1 ROD/3 YEARS  (LEFT ARM)
     Route: 059
     Dates: start: 20160405, end: 20170209
  2. NEXPLANON [Suspect]
     Active Substance: ETONOGESTREL
     Dosage: 1 ROD (LEFT ARM)
     Dates: start: 20170209

REACTIONS (3)
  - Device breakage [Recovered/Resolved]
  - Medical device site discomfort [Unknown]
  - Device kink [Recovered/Resolved]
